FAERS Safety Report 13861581 (Version 1)
Quarter: 2017Q3

REPORT INFORMATION
  Report Type: Spontaneous
  Country: BR (occurrence: BR)
  Receive Date: 20170811
  Receipt Date: 20170811
  Transmission Date: 20171127
  Serious: Yes (Other)
  Sender: FDA-Public Use
  Company Number: BR-ALEXION-A201709086

PATIENT
  Sex: Female

DRUGS (2)
  1. SOLIRIS [Suspect]
     Active Substance: ECULIZUMAB
     Indication: PAROXYSMAL NOCTURNAL HAEMOGLOBINURIA
     Dosage: 600 MG, 4 WEEKS
     Route: 042
     Dates: start: 20120426, end: 20120517
  2. SOLIRIS [Suspect]
     Active Substance: ECULIZUMAB
     Dosage: 900 MG, 14 DAYS
     Route: 042
     Dates: start: 20120524

REACTIONS (6)
  - Amnesia [Unknown]
  - Cognitive disorder [Unknown]
  - Somnolence [Unknown]
  - Apallic syndrome [Unknown]
  - Vomiting [Unknown]
  - Migraine [Unknown]
